FAERS Safety Report 20788437 (Version 1)
Quarter: 2022Q2

REPORT INFORMATION
  Report Type: Spontaneous
  Country: US (occurrence: US)
  Receive Date: 20220505
  Receipt Date: 20220505
  Transmission Date: 20220720
  Serious: No
  Sender: FDA-Public Use
  Company Number: None

PATIENT
  Age: 77 Year
  Sex: Female

DRUGS (1)
  1. REVLIMID [Suspect]
     Active Substance: LENALIDOMIDE
     Indication: Product used for unknown indication
     Dosage: 10MG CAP
     Route: 048
     Dates: start: 202001

REACTIONS (2)
  - Diarrhoea [Unknown]
  - No adverse event [Unknown]

NARRATIVE: CASE EVENT DATE: 20220329
